FAERS Safety Report 11335379 (Version 3)
Quarter: 2016Q1

REPORT INFORMATION
  Report Type: Spontaneous
  Country: JP (occurrence: JP)
  Receive Date: 20150804
  Receipt Date: 20160210
  Transmission Date: 20160525
  Serious: Yes (Hospitalization)
  Sender: FDA-Public Use
  Company Number: JP-SA-2015SA113875

PATIENT
  Age: 64 Year
  Sex: Male
  Weight: 52 kg

DRUGS (14)
  1. JEVTANA [Suspect]
     Active Substance: CABAZITAXEL
     Indication: PROSTATE CANCER
     Route: 042
     Dates: start: 20150721
  2. FLIVAS [Concomitant]
     Active Substance: NAFTOPIDIL
     Route: 048
     Dates: start: 20140905
  3. WARFARIN [Concomitant]
     Active Substance: WARFARIN
     Route: 048
     Dates: start: 20150307
  4. MICARDIS [Concomitant]
     Active Substance: TELMISARTAN
     Route: 048
     Dates: start: 20130222
  5. POLARAMINE [Concomitant]
     Active Substance: DEXCHLORPHENIRAMINE MALEATE
     Indication: PREMEDICATION
     Dosage: EACH TIME WHEN JEVTANA THERAPY WAS PERFORMED
     Dates: start: 20150721
  6. AMLODIPINE [Concomitant]
     Active Substance: AMLODIPINE BESYLATE
     Route: 048
     Dates: start: 20130222
  7. GASTER [Concomitant]
     Active Substance: FAMOTIDINE
     Indication: PREMEDICATION
     Dosage: EACH TIME WHEN JEVTANA THERAPY WAS PERFORMED
     Dates: start: 20150721
  8. DEXART [Concomitant]
     Active Substance: DEXAMETHASONE SODIUM PHOSPHATE
     Indication: PREMEDICATION
     Dosage: EACH TIME WHEN JEVTANA THERAPY WAS PERFORMED
     Dates: start: 20150721
  9. RANMARK [Concomitant]
     Active Substance: DENOSUMAB
  10. DENOTAS CHEWABLE COMBINATION TABLET [Concomitant]
     Active Substance: CALCIUM CARBONATE\CHOLECALCIFEROL\MAGNESIUM CARBONATE
     Route: 048
     Dates: start: 20150306
  11. HALCION [Concomitant]
     Active Substance: TRIAZOLAM
     Route: 048
     Dates: start: 20150123
  12. GONAX [Concomitant]
     Active Substance: DEGARELIX
  13. LIPITOR [Concomitant]
     Active Substance: ATORVASTATIN CALCIUM
     Route: 048
     Dates: start: 20140926
  14. G-LASTA [Concomitant]
     Active Substance: PEGFILGRASTIM
     Dates: start: 20150722

REACTIONS (4)
  - Hyponatraemia [Recovered/Resolved]
  - Altered state of consciousness [Unknown]
  - Inappropriate antidiuretic hormone secretion [Recovered/Resolved]
  - Fall [Unknown]

NARRATIVE: CASE EVENT DATE: 20150723
